FAERS Safety Report 9722585 (Version 3)
Quarter: 2015Q2

REPORT INFORMATION
  Report Type: Spontaneous
  Country: US (occurrence: US)
  Receive Date: 20131202
  Receipt Date: 20150424
  Transmission Date: 20150821
  Serious: No
  Sender: FDA-Public Use
  Company Number: US-PFIZER INC-2013340282

PATIENT
  Age: 80 Year
  Sex: Female

DRUGS (4)
  1. PRENATAL [Concomitant]
     Active Substance: VITAMINS
     Dosage: 27 MG, UNK
  2. XELJANZ [Suspect]
     Active Substance: TOFACITINIB CITRATE
     Indication: RHEUMATOID ARTHRITIS
     Dosage: 5 MG, 2X/DAY
     Route: 048
     Dates: start: 201309
  3. IRON [Concomitant]
     Active Substance: IRON
     Dosage: 18 MG, UNK
  4. FOLIC ACID. [Concomitant]
     Active Substance: FOLIC ACID
     Dosage: 20 MG, UNK

REACTIONS (1)
  - Decreased appetite [Not Recovered/Not Resolved]
